FAERS Safety Report 24036170 (Version 2)
Quarter: 2024Q3

REPORT INFORMATION
  Report Type: Spontaneous
  Country: US (occurrence: US)
  Receive Date: 20240701
  Receipt Date: 20240729
  Transmission Date: 20241016
  Serious: No
  Sender: AMGEN
  Company Number: US-AMGEN-USASP2024127465

PATIENT
  Age: 75 Year
  Sex: Female

DRUGS (2)
  1. EVENITY [Suspect]
     Active Substance: ROMOSOZUMAB-AQQG
     Indication: Osteoporosis postmenopausal
     Dosage: TWICE A YEAR
     Route: 065
     Dates: start: 20240612
  2. PLAQUENIL [Concomitant]
     Active Substance: HYDROXYCHLOROQUINE SULFATE
     Indication: Arthritis
     Dosage: UNK
     Route: 065

REACTIONS (3)
  - Pain in extremity [Unknown]
  - Erythema [Unknown]
  - Off label use [Unknown]

NARRATIVE: CASE EVENT DATE: 20240601
